FAERS Safety Report 25313951 (Version 4)
Quarter: 2025Q3

REPORT INFORMATION
  Report Type: Report from Study
  Country: US (occurrence: US)
  Receive Date: 20250514
  Receipt Date: 20250718
  Transmission Date: 20251021
  Serious: Yes (Other)
  Sender: CSL BEHRING
  Company Number: US-BEH-2025204564

PATIENT
  Age: 57 Year
  Sex: Male
  Weight: 122.45 kg

DRUGS (1)
  1. ZEMAIRA [Suspect]
     Active Substance: .ALPHA.1-PROTEINASE INHIBITOR HUMAN
     Indication: Alpha-1 antitrypsin deficiency
     Dosage: UNK, QW
     Route: 042

REACTIONS (8)
  - Chronic obstructive pulmonary disease [Recovering/Resolving]
  - Nerve compression [Unknown]
  - Adverse drug reaction [Unknown]
  - Cough [Recovering/Resolving]
  - Dyspnoea [Recovering/Resolving]
  - Upper respiratory tract infection [Recovered/Resolved]
  - Therapy change [Unknown]
  - Insurance issue [Unknown]
